FAERS Safety Report 8492011-4 (Version None)
Quarter: 2012Q3

REPORT INFORMATION
  Report Type: 
  Country: None (occurrence: None)
  Receive Date: 20120706
  Receipt Date: 20120702
  Transmission Date: 20120928
  Serious: Yes (Hospitalization, Other)
  Sender: FDA-Public Use
  Company Number: US-BAYER-201035889NA

PATIENT
  Age: 30 Year
  Sex: Female
  Weight: 53.515 kg

DRUGS (4)
  1. YAZ [Suspect]
     Indication: ACNE
  2. YAZ [Suspect]
     Indication: CONTRACEPTION
     Dosage: 1 DF, QD
     Route: 048
     Dates: start: 20080701, end: 20091001
  3. YAZ [Suspect]
     Indication: PREMENSTRUAL SYNDROME
  4. ZOFRAN [Concomitant]
     Dosage: UNK UNK, PRN
     Dates: start: 20090501

REACTIONS (6)
  - GALLBLADDER DISORDER [None]
  - PALPITATIONS [None]
  - EMOTIONAL DISTRESS [None]
  - CHOLECYSTITIS [None]
  - MIGRAINE [None]
  - DIARRHOEA [None]
